FAERS Safety Report 24017678 (Version 1)
Quarter: 2024Q2

REPORT INFORMATION
  Report Type: Spontaneous
  Country: GB (occurrence: GB)
  Receive Date: 20240627
  Receipt Date: 20240627
  Transmission Date: 20240715
  Serious: Yes (Other)
  Sender: FDA-Public Use
  Company Number: None

PATIENT
  Age: 51 Year
  Sex: Male
  Weight: 120 kg

DRUGS (2)
  1. GLICLAZIDE [Suspect]
     Active Substance: GLICLAZIDE
     Indication: Diabetes mellitus
     Dosage: 40MG A DAY MORNINGS
     Route: 065
     Dates: start: 20240424, end: 20240607
  2. METFORMIN [Suspect]
     Active Substance: METFORMIN HYDROCHLORIDE
     Indication: Diabetes mellitus
     Dosage: 500MG A DAY MORNINGS
     Route: 065
     Dates: start: 20240420, end: 20240505

REACTIONS (1)
  - Cardiac disorder [Recovered/Resolved]

NARRATIVE: CASE EVENT DATE: 20240427
